FAERS Safety Report 17427833 (Version 1)
Quarter: 2020Q1

REPORT INFORMATION
  Report Type: Spontaneous
  Country: US (occurrence: US)
  Receive Date: 20200131
  Receipt Date: 20200131
  Transmission Date: 20200409
  Serious: No
  Sender: FDA-Public Use
  Company Number: None

PATIENT

DRUGS (2)
  1. CLOMIPHENE [Suspect]
     Active Substance: CLOMIPHENE
  2. CLOMIPRAMINE [Suspect]
     Active Substance: CLOMIPRAMINE

REACTIONS (2)
  - Product dispensing error [None]
  - Wrong product administered [None]

NARRATIVE: CASE EVENT DATE: 2019
